FAERS Safety Report 18586367 (Version 5)
Quarter: 2021Q1

REPORT INFORMATION
  Report Type: Spontaneous
  Country: US (occurrence: US)
  Receive Date: 20201207
  Receipt Date: 20210303
  Transmission Date: 20210419
  Serious: Yes (Other)
  Sender: FDA-Public Use
  Company Number: US-PFIZER INC-2020479849

PATIENT
  Age: 66 Year
  Sex: Female
  Weight: 118.39 kg

DRUGS (3)
  1. IBRANCE [Suspect]
     Active Substance: PALBOCICLIB
     Dosage: UNK, CYCLIC (3 WEEKS ON AND THEN ONE WEEK OFF)
  2. IBRANCE [Suspect]
     Active Substance: PALBOCICLIB
     Dosage: 125 MG, CYCLIC (3 WEEKS AND OFF 1 WEEK/ ONCE A DAY FOR 3 WEEKS AND OFF 1 WEEK)
     Route: 048
     Dates: start: 202009
  3. IBRANCE [Suspect]
     Active Substance: PALBOCICLIB
     Indication: BREAST CANCER
     Dosage: 125 MG

REACTIONS (8)
  - Constipation [Unknown]
  - Nasal disorder [Unknown]
  - Pain [Unknown]
  - Gait inability [Unknown]
  - Rectal haemorrhage [Recovered/Resolved]
  - Thrombosis [Unknown]
  - Epistaxis [Unknown]
  - Haemoptysis [Unknown]

NARRATIVE: CASE EVENT DATE: 202009
